FAERS Safety Report 9251921 (Version 2)
Quarter: 2013Q3

REPORT INFORMATION
  Report Type: Spontaneous
  Country: US (occurrence: US)
  Receive Date: 20130424
  Receipt Date: 20130710
  Transmission Date: 20140515
  Serious: No
  Sender: FDA-Public Use
  Company Number: US-PFIZER INC-2013120483

PATIENT
  Age: 48 Year
  Sex: Female
  Weight: 94.33 kg

DRUGS (2)
  1. ADVIL [Suspect]
     Indication: HEADACHE
     Dosage: 200 MG, DAILY
     Dates: start: 20130405, end: 201304
  2. ADVIL [Suspect]
     Indication: PYREXIA

REACTIONS (1)
  - Hallucination [Recovered/Resolved]
